FAERS Safety Report 25818919 (Version 1)
Quarter: 2025Q3

REPORT INFORMATION
  Report Type: Spontaneous
  Country: US (occurrence: None)
  Receive Date: 20250918
  Receipt Date: 20250918
  Transmission Date: 20251020
  Serious: Yes (Hospitalization)
  Sender: FDA-CTU
  Company Number: None

PATIENT
  Age: 60 Year
  Sex: Male
  Weight: 153 kg

DRUGS (3)
  1. ZEPBOUND [Suspect]
     Active Substance: TIRZEPATIDE
     Indication: Weight decreased
     Dates: start: 20250430, end: 20250815
  2. ATORVASTATIN [Concomitant]
     Active Substance: ATORVASTATIN
  3. One a day multi vitamin [Concomitant]

REACTIONS (7)
  - Vertigo [None]
  - Middle insomnia [None]
  - Nausea [None]
  - Vomiting [None]
  - Dizziness [None]
  - Brain fog [None]
  - Therapy cessation [None]

NARRATIVE: CASE EVENT DATE: 20250515
